FAERS Safety Report 11537045 (Version 4)
Quarter: 2016Q1

REPORT INFORMATION
  Report Type: Spontaneous
  Country: NL (occurrence: NL)
  Receive Date: 20150922
  Receipt Date: 20160108
  Transmission Date: 20160525
  Serious: Yes (Death, Hospitalization)
  Sender: FDA-Public Use
  Company Number: NL-ELI_LILLY_AND_COMPANY-NL201509005703

PATIENT
  Sex: Female

DRUGS (4)
  1. VITAMIN B12 [Concomitant]
     Active Substance: CYANOCOBALAMIN
     Indication: SUPPLEMENTATION THERAPY
     Dosage: UNK, UNKNOWN
     Route: 065
  2. FOLIC ACID. [Concomitant]
     Active Substance: FOLIC ACID
     Indication: SUPPLEMENTATION THERAPY
     Dosage: UNK, UNKNOWN
     Route: 065
  3. SERTRALINE [Suspect]
     Active Substance: SERTRALINE HYDROCHLORIDE
     Indication: DEPRESSION
     Dosage: UNK UNK, UNKNOWN
     Route: 065
     Dates: start: 20141115
  4. ALIMTA [Suspect]
     Active Substance: PEMETREXED DISODIUM
     Indication: ADJUVANT THERAPY
     Dosage: 500 MG/M2, CYCLICAL
     Route: 042
     Dates: start: 20141030

REACTIONS (1)
  - Diffuse alveolar damage [Fatal]

NARRATIVE: CASE EVENT DATE: 201502
